FAERS Safety Report 6029747-0 (Version None)
Quarter: 2008Q4

REPORT INFORMATION
  Report Type: 
  Country: None (occurrence: None)
  Receive Date: 20081222
  Receipt Date: 20080915
  Transmission Date: 20090506
  Serious: No
  Sender: FDA-Public Use
  Company Number: US-WYE-H06188408

PATIENT
  Sex: Male

DRUGS (1)
  1. PRISTIQ [Suspect]

REACTIONS (2)
  - DISINHIBITION [None]
  - DISTURBANCE IN ATTENTION [None]
